FAERS Safety Report 19632934 (Version 2)
Quarter: 2021Q3

REPORT INFORMATION
  Report Type: Report from Study
  Country: FR (occurrence: FR)
  Receive Date: 20210730
  Receipt Date: 20210810
  Transmission Date: 20211014
  Serious: Yes (Other)
  Sender: FDA-Public Use
  Company Number: FR-AUROBINDO-AUR-APL-2021-032880

PATIENT
  Age: 58 Year
  Sex: Female

DRUGS (9)
  1. BENZYLPENICILLIN [Suspect]
     Active Substance: PENICILLIN G
     Indication: SKIN TEST
     Dosage: 10000 INTERNATIONAL UNIT PER MILLILITRE(10000 UI/ML DURING SKIN TEST )
     Route: 065
  2. PENICILLOYL POLYLYSINE [Suspect]
     Active Substance: PENICILLOYL-POLYLYSINE
     Indication: SKIN TEST
     Dosage: 20 MILLIGRAM PER MILLILITRE(20MG/ML DURING SKIN TEST)
     Route: 065
  3. CEFOTAXIME [Suspect]
     Active Substance: CEFOTAXIME SODIUM
     Indication: PRODUCT USED FOR UNKNOWN INDICATION
     Dosage: UNK
     Route: 065
  4. CEFRADINE [Suspect]
     Active Substance: CEPHRADINE
     Indication: SKIN TEST
     Dosage: 2 MILLIGRAM PER MILLILETER(2 MG/ML DURING SKIN TEST)
     Route: 065
  5. CEFUROXIME. [Suspect]
     Active Substance: CEFUROXIME
     Indication: SKIN TEST
     Dosage: 2 MILLIGRAM PER MILLILITRE(2 MG/ML DURING SKIN TEST)
     Route: 065
  6. AMOXICILLIN. [Suspect]
     Active Substance: AMOXICILLIN
     Indication: SKIN TEST
     Dosage: 20 MILLIGRAM PER MILLILITRE(20MG/ML DURING SKIN TEST)
     Route: 065
  7. CEFTRIAXONE. [Suspect]
     Active Substance: CEFTRIAXONE
     Indication: SKIN TEST
     Dosage: 2 MILLIGRAM PER MILLILITRE(2 MG/ML DURING SKIN TEST)
     Route: 065
  8. CEFALOTINE [Suspect]
     Active Substance: CEPHALOTHIN
     Indication: SKIN TEST
     Dosage: 2 MILLIGRAM PER MILLILETER(2 MG/ML DURING SKIN TEST)
     Route: 065
  9. AMPICILLIN [Suspect]
     Active Substance: AMPICILLIN
     Indication: SKIN TEST
     Dosage: 20 MILLIGRAM PER MILLILITRE(20MG/ML DURING SKIN TEST )
     Route: 065

REACTIONS (4)
  - Bronchospasm [Unknown]
  - Hypotension [Unknown]
  - Angioedema [Unknown]
  - Anaphylactic shock [Unknown]
